FAERS Safety Report 8825739 (Version 1)
Quarter: 2012Q4

REPORT INFORMATION
  Report Type: Report from Study
  Country: US (occurrence: US)
  Receive Date: 20121004
  Receipt Date: 20121004
  Transmission Date: 20130627
  Serious: Yes (Death)
  Sender: FDA-Public Use
  Company Number: US-MPIJNJ-2012-06830

PATIENT

DRUGS (6)
  1. VELCADE [Suspect]
     Indication: AMYLOIDOSIS
     Dosage: 1.3 mg/m2, Cyclic
     Route: 042
  2. MELPHALAN [Suspect]
     Indication: AMYLOIDOSIS
     Dosage: 200 mg/m2, Cyclic
     Route: 042
  3. MELPHALAN [Suspect]
     Dosage: 140 mg/m2, Cyclic
     Route: 042
     Dates: start: 200703, end: 201105
  4. MELPHALAN [Suspect]
     Dosage: 100 mg/m2, Cyclic
     Route: 042
     Dates: start: 200703, end: 201105
  5. DEXAMETHASONE [Suspect]
     Indication: AMYLOIDOSIS
     Dosage: 20 mg, Cyclic
     Route: 048
  6. GRANULOCYTE COLONY STIMULATING FACTOR [Concomitant]
     Indication: AMYLOIDOSIS
     Dosage: UNK

REACTIONS (1)
  - Cardiac disorder [Fatal]
